FAERS Safety Report 4423004-1 (Version None)
Quarter: 2004Q3

REPORT INFORMATION
  Report Type: 
  Country: None (occurrence: None)
  Receive Date: 20040805
  Receipt Date: 20040729
  Transmission Date: 20050211
  Serious: Yes (Death, Other)
  Sender: FDA-Public Use
  Company Number: HQWYE700002AUG04

PATIENT
  Age: 53 Year
  Sex: Female

DRUGS (1)
  1. PREMPRO [Suspect]

REACTIONS (2)
  - BREAST CANCER FEMALE [None]
  - BREAST NECROSIS [None]
